FAERS Safety Report 9006291 (Version 1)
Quarter: 2013Q1

REPORT INFORMATION
  Report Type: Spontaneous
  Country: US (occurrence: US)
  Receive Date: 20130110
  Receipt Date: 20130110
  Transmission Date: 20140127
  Serious: Yes (Other)
  Sender: FDA-Public Use
  Company Number: US-009507513-0901USA02239

PATIENT
  Age: 4 Year
  Sex: Female
  Weight: 20.41 kg

DRUGS (2)
  1. SINGULAIR [Suspect]
     Indication: ASTHMA
     Dosage: 4 MG, QD
     Route: 048
     Dates: start: 20070901, end: 20080902
  2. SINGULAIR [Suspect]
     Indication: HYPERSENSITIVITY

REACTIONS (8)
  - Abnormal behaviour [Unknown]
  - Abnormal dreams [Unknown]
  - Anger [Unknown]
  - Anxiety [Unknown]
  - Fatigue [Unknown]
  - Mood altered [Unknown]
  - Sleep disorder [Unknown]
  - Stress [Unknown]
